FAERS Safety Report 6664109-4 (Version None)
Quarter: 2010Q2

REPORT INFORMATION
  Report Type: 
  Country: None (occurrence: None)
  Receive Date: 20100401
  Receipt Date: 20100326
  Transmission Date: 20101027
  Serious: Yes (Hospitalization, Other)
  Sender: FDA-Public Use
  Company Number: B0439516A

PATIENT
  Sex: Female

DRUGS (13)
  1. FLOLAN [Suspect]
     Indication: PULMONARY ARTERIAL HYPERTENSION
     Route: 042
     Dates: start: 20010214
  2. WARFARIN POTASSIUM [Concomitant]
     Route: 048
  3. FUROSEMIDE [Concomitant]
     Route: 048
  4. DIGOXIN [Concomitant]
     Route: 048
  5. PERSANTINE [Concomitant]
     Route: 048
  6. RENIVACE [Concomitant]
     Route: 048
  7. VIAGRA [Concomitant]
     Route: 048
  8. TRACLEER [Concomitant]
     Route: 048
  9. REVATIO [Concomitant]
     Route: 048
  10. MERCAZOLE [Concomitant]
     Route: 048
  11. FERO-GRADUMET [Concomitant]
     Route: 048
     Dates: start: 20090104
  12. TOLEDOMIN [Concomitant]
     Route: 048
     Dates: start: 20090226
  13. LORAZEPAM [Concomitant]
     Route: 048
     Dates: start: 20090226

REACTIONS (8)
  - BASEDOW'S DISEASE [None]
  - CARDIAC FAILURE [None]
  - GOITRE [None]
  - HYPERTHYROIDISM [None]
  - MEDICAL DEVICE COMPLICATION [None]
  - NECK PAIN [None]
  - TACHYCARDIA [None]
  - THYROID FUNCTION TEST ABNORMAL [None]
